FAERS Safety Report 16607789 (Version 1)
Quarter: 2019Q3

REPORT INFORMATION
  Report Type: Spontaneous
  Country: GB (occurrence: GB)
  Receive Date: 20190722
  Receipt Date: 20190722
  Transmission Date: 20191004
  Serious: Yes (Life-Threatening)
  Sender: FDA-Public Use
  Company Number: GB-SUN PHARMACEUTICAL INDUSTRIES LTD-2019RR-214232

PATIENT
  Age: 61 Year
  Sex: Male
  Weight: 59 kg

DRUGS (2)
  1. ROSUVASTATIN CALCIUM. [Concomitant]
     Active Substance: ROSUVASTATIN CALCIUM
     Indication: PRODUCT USED FOR UNKNOWN INDICATION
     Dosage: ()
     Route: 065
  2. TAMSULOSIN [Suspect]
     Active Substance: TAMSULOSIN
     Indication: LOWER URINARY TRACT SYMPTOMS
     Dosage: 400 MICROGRAM, UNK
     Route: 048
     Dates: start: 20190605, end: 20190612

REACTIONS (3)
  - Atrial fibrillation [Recovered/Resolved]
  - Dizziness postural [Unknown]
  - Syncope [Unknown]

NARRATIVE: CASE EVENT DATE: 20190612
